FAERS Safety Report 6593174-8 (Version None)
Quarter: 2010Q1

REPORT INFORMATION
  Report Type: 
  Country: None (occurrence: None)
  Receive Date: 20100222
  Receipt Date: 20100212
  Transmission Date: 20100710
  Serious: Yes (Hospitalization)
  Sender: FDA-Public Use
  Company Number: PHHO2010FR01379

PATIENT
  Sex: Female
  Weight: 63 kg

DRUGS (5)
  1. CERTICAN [Suspect]
     Indication: LIVER TRANSPLANT
     Dosage: 4MG/D
     Route: 048
  2. TACROLIMUS [Suspect]
     Indication: LIVER TRANSPLANT
     Route: 048
  3. SOLUPRED [Concomitant]
     Indication: IMMUNOSUPPRESSION
  4. DEROXAT [Concomitant]
     Indication: DEPRESSION
  5. ESOMEPRAZOLE MAGNESIUM [Concomitant]
     Indication: PROPHYLAXIS AGAINST GASTROINTESTINAL ULCER

REACTIONS (3)
  - CHOLESTASIS [None]
  - CYTOLYTIC HEPATITIS [None]
  - LIVER TRANSPLANT REJECTION [None]
